FAERS Safety Report 8167762-1 (Version None)
Quarter: 2012Q1

REPORT INFORMATION
  Report Type: 
  Country: None (occurrence: None)
  Receive Date: 20120227
  Receipt Date: 20120221
  Transmission Date: 20120608
  Serious: Yes (Other)
  Sender: FDA-Public Use
  Company Number: US-PFIZER INC-2011305641

PATIENT
  Sex: Female

DRUGS (3)
  1. METHADONE [Concomitant]
     Indication: BACK PAIN
     Dosage: UNK
     Dates: start: 19990101
  2. LORCET-HD [Concomitant]
     Indication: BACK PAIN
     Dosage: UNK
     Dates: start: 19940101, end: 20100101
  3. CHANTIX [Suspect]
     Indication: SMOKING CESSATION THERAPY
     Dosage: 1 MG, UNK
     Dates: start: 20080630, end: 20081101

REACTIONS (6)
  - MENTAL DISORDER [None]
  - ANXIETY [None]
  - SUICIDAL IDEATION [None]
  - DEPRESSION [None]
  - INSOMNIA [None]
  - AGGRESSION [None]
